FAERS Safety Report 24018793 (Version 2)
Quarter: 2024Q3

REPORT INFORMATION
  Report Type: Spontaneous
  Country: FR (occurrence: FR)
  Receive Date: 20240627
  Receipt Date: 20240710
  Transmission Date: 20241017
  Serious: Yes (Hospitalization, Other)
  Sender: CELLTRION
  Company Number: FR-CELLTRION INC.-2024FR015342

PATIENT

DRUGS (5)
  1. RITUXIMAB [Suspect]
     Active Substance: RITUXIMAB
     Indication: Thrombotic thrombocytopenic purpura
     Dosage: 375 MG/M2, 1 CYCLE
     Route: 042
     Dates: start: 20220805, end: 20220812
  2. CABLIVI [Concomitant]
     Active Substance: CAPLACIZUMAB-YHDP
     Indication: Thrombotic thrombocytopenic purpura
     Dosage: 10 MILLIGRAM, QD
     Route: 058
     Dates: start: 20220812
  3. METHYLPREDNISOLONE [Concomitant]
     Active Substance: METHYLPREDNISOLONE
     Indication: Thrombotic thrombocytopenic purpura
     Dosage: 20 MILLIGRAM, QD
     Route: 048
     Dates: start: 20220804, end: 20220812
  4. AUGMENTIN [Concomitant]
     Active Substance: AMOXICILLIN\CLAVULANATE POTASSIUM
     Dosage: UNK
     Dates: start: 20220818
  5. FOLIC ACID [Concomitant]
     Active Substance: FOLIC ACID
     Indication: Thrombotic thrombocytopenic purpura
     Dosage: 5 MILLIGRAM, QD
     Route: 048
     Dates: start: 20220804, end: 20220812

REACTIONS (3)
  - Agranulocytosis [Recovered/Resolved]
  - Thrombocytopenia [Recovered/Resolved]
  - Intentional product use issue [Unknown]

NARRATIVE: CASE EVENT DATE: 20220818
